FAERS Safety Report 7340838-4 (Version None)
Quarter: 2011Q1

REPORT INFORMATION
  Report Type: 
  Country: None (occurrence: None)
  Receive Date: 20110309
  Receipt Date: 20110228
  Transmission Date: 20110831
  Serious: Yes (Hospitalization)
  Sender: FDA-Public Use
  Company Number: GB-TEVA-270002ISR

PATIENT
  Age: 36 Year
  Sex: Female

DRUGS (7)
  1. BLEOMYCIN SULFATE [Suspect]
  2. METHOTREXATE [Suspect]
  3. DACTINOMYCIN [Suspect]
  4. ETOPOSIDE [Suspect]
     Dosage: FIRST TWO DAYS 100 MG/M2
  5. CYCLOPHOSPHAMIDE [Suspect]
  6. CISPLATIN [Suspect]
     Dosage: FIRST TWO DAYS 20 MG/M2
  7. VINCRISTINE [Suspect]

REACTIONS (2)
  - TUBERCULOSIS [None]
  - BLOOD GONADOTROPHIN ABNORMAL [None]
